FAERS Safety Report 24994402 (Version 4)
Quarter: 2025Q1

REPORT INFORMATION
  Report Type: Report from Study
  Country: US (occurrence: US)
  Receive Date: 20250221
  Receipt Date: 20250317
  Transmission Date: 20250408
  Serious: Yes (Hospitalization, Other)
  Sender: CSL BEHRING
  Company Number: US-BEH-2025196221

PATIENT
  Age: 72 Year
  Sex: Female
  Weight: 69.388 kg

DRUGS (3)
  1. HIZENTRA [Suspect]
     Active Substance: HUMAN IMMUNOGLOBULIN G
     Indication: Selective IgG subclass deficiency
     Dosage: EVERY 2 WEEKS (EVERY 14 DAYS)
     Route: 065
     Dates: start: 2016
  2. HIZENTRA [Suspect]
     Active Substance: HUMAN IMMUNOGLOBULIN G
     Dosage: EVERY 2 WEEKS (EVERY 14 DAYS)
     Route: 065
     Dates: start: 20250123
  3. HIZENTRA [Suspect]
     Active Substance: HUMAN IMMUNOGLOBULIN G
     Route: 065

REACTIONS (11)
  - COVID-19 pneumonia [Unknown]
  - Pneumonia influenzal [Not Recovered/Not Resolved]
  - Influenza [Unknown]
  - Rotator cuff syndrome [Unknown]
  - Illness [Unknown]
  - Insurance issue [Unknown]
  - Product use issue [Unknown]
  - Intentional dose omission [Unknown]
  - Illness [Unknown]
  - Influenza [Unknown]
  - Cough [Not Recovered/Not Resolved]

NARRATIVE: CASE EVENT DATE: 20241001
